FAERS Safety Report 8568401-8 (Version None)
Quarter: 2012Q3

REPORT INFORMATION
  Report Type: 
  Country: None (occurrence: None)
  Receive Date: 20120803
  Receipt Date: 20120508
  Transmission Date: 20120928
  Serious: No
  Sender: FDA-Public Use
  Company Number: US-ABBOTT-12P-163-0933347-00

PATIENT
  Sex: Female
  Weight: 88.984 kg

DRUGS (5)
  1. PROCHLORPERAZINE [Concomitant]
     Indication: PRODUCT USED FOR UNKNOWN INDICATION
  2. LISINOPRIL AND HYDROCHLOROTHIAZIDE [Concomitant]
     Indication: PRODUCT USED FOR UNKNOWN INDICATION
     Dosage: 20/12
  3. HYDROXYUREA [Concomitant]
     Indication: BLOOD DISORDER
  4. AMILODIPINE BESYLATE [Concomitant]
     Indication: HYPERTENSION
  5. NIASPAN [Suspect]
     Indication: BLOOD CHOLESTEROL

REACTIONS (2)
  - PAIN [None]
  - BURNING SENSATION [None]
